FAERS Safety Report 4415431-3 (Version None)
Quarter: 2004Q3

REPORT INFORMATION
  Report Type: 
  Country: None (occurrence: None)
  Receive Date: 20040729
  Receipt Date: 20040716
  Transmission Date: 20050211
  Serious: Yes (Life-Threatening, Other)
  Sender: FDA-Public Use
  Company Number: 2004027664

PATIENT
  Sex: Female
  Weight: 81.1939 kg

DRUGS (17)
  1. NEURONTIN [Suspect]
     Indication: CONVULSION
     Dosage: 2400 MG (800 MG, 3 IN 1 D), ORAL
     Route: 048
  2. DONEPEZIL HCL [Suspect]
     Indication: DEMENTIA ALZHEIMER'S TYPE
     Dosage: 10 MG (10 MG, 1 IN 1 D), ORAL
     Route: 048
     Dates: start: 20040401
  3. CARBAMAZEPINE [Concomitant]
  4. WARFARIN SODIUM [Concomitant]
  5. AMIODARONE HCL [Concomitant]
  6. DIGOXIN [Concomitant]
  7. FUROSEMIDE [Concomitant]
  8. ISOSORBIDE MONONITRATE [Concomitant]
  9. POTASSIUM CHLORIDE [Concomitant]
  10. ACETYLSALICYLIC ACID SRT [Concomitant]
  11. CENTRUM (MINERALS NOS, VITAMINS NOS) [Concomitant]
  12. ATORVASTATIN CALCIUM [Concomitant]
  13. ALL OTHER THERAPEUTIC PRODUCTS (ALL OTHER THERAPEUTIC PRODUCTS) [Concomitant]
  14. MAGNESIUM (MAGNESIUM) [Concomitant]
  15. ZINC (ZINC) [Concomitant]
  16. METOPROLOL (METOPROLOL) [Concomitant]
  17. ENALAPRIL MALEATE [Concomitant]

REACTIONS (12)
  - ATRIAL FIBRILLATION [None]
  - CARDIAC OPERATION [None]
  - CARDIAC PACEMAKER INSERTION [None]
  - CORONARY ARTERY SURGERY [None]
  - DECREASED APPETITE [None]
  - DEMENTIA ALZHEIMER'S TYPE [None]
  - DIARRHOEA [None]
  - DIZZINESS [None]
  - HYPOGLYCAEMIA [None]
  - INSOMNIA [None]
  - MYOCARDIAL INFARCTION [None]
  - TRICUSPID VALVE INCOMPETENCE [None]
